FAERS Safety Report 6139676-X (Version None)
Quarter: 2009Q2

REPORT INFORMATION
  Report Type: 
  Country: None (occurrence: None)
  Receive Date: 20090401
  Receipt Date: 20090217
  Transmission Date: 20091009
  Serious: No
  Sender: FDA-Public Use
  Company Number: US-TYCO HEALTHCARE/MALLINCKRODT-T200900542

PATIENT

DRUGS (2)
  1. TECHNETIUM TC 99M SESTAMIBI [Suspect]
     Indication: CARDIAC STRESS TEST
     Dosage: UNK, UNK
     Route: 042
     Dates: start: 20090217, end: 20090217
  2. TECHNETIUM TC 99M GENERATOR [Concomitant]
     Indication: CARDIAC STRESS TEST
     Dosage: UNK MCI, UNK
     Route: 042
     Dates: start: 20090217, end: 20090217

REACTIONS (1)
  - DRUG INEFFECTIVE [None]
